FAERS Safety Report 10381344 (Version 1)
Quarter: 2014Q1

REPORT INFORMATION
  Report Type: Spontaneous
  Country: US (occurrence: None)
  Receive Date: 20140306
  Receipt Date: 20140306
  Transmission Date: 20141002
  Serious: Yes (Hospitalization)
  Sender: FDA-Public Use
  Company Number: 163-21880-13024009

PATIENT
  Age: 76 Year
  Sex: Male

DRUGS (3)
  1. REVLIMID [Suspect]
     Indication: PLASMA CELL MYELOMA
     Route: 048
     Dates: start: 20121227
  2. COREG (CARVEDILOL) [Suspect]
     Indication: PRODUCT USED FOR UNKNOWN INDICATION
  3. SCOPOLAMINE AMINOXIDE HYDROBROMIDE [Suspect]
     Indication: PRODUCT USED FOR UNKNOWN INDICATION

REACTIONS (8)
  - Hallucination [None]
  - Cardiac failure congestive [None]
  - Lethargy [None]
  - Increased upper airway secretion [None]
  - Pruritus [None]
  - Diarrhoea [None]
  - White blood cell disorder [None]
  - Red blood cell count abnormal [None]
